FAERS Safety Report 16817574 (Version 5)
Quarter: 2020Q4

REPORT INFORMATION
  Report Type: Spontaneous
  Country: US (occurrence: US)
  Receive Date: 20190917
  Receipt Date: 20201027
  Transmission Date: 20210113
  Serious: No
  Sender: FDA-Public Use
  Company Number: US-PFIZER INC-2019397981

PATIENT
  Age: 61 Year
  Sex: Female
  Weight: 74 kg

DRUGS (2)
  1. XELJANZ XR [Suspect]
     Active Substance: TOFACITINIB CITRATE
     Dosage: UNK
  2. XELJANZ XR [Suspect]
     Active Substance: TOFACITINIB CITRATE
     Indication: RHEUMATOID ARTHRITIS
     Dosage: 11 MG, 1X/DAY
     Route: 048

REACTIONS (8)
  - Cough [Unknown]
  - Sinusitis [Unknown]
  - Oropharyngeal discomfort [Unknown]
  - Hypersensitivity [Unknown]
  - Hordeolum [Unknown]
  - Rosacea [Unknown]
  - Aphonia [Unknown]
  - Dysphonia [Unknown]
